FAERS Safety Report 11165983 (Version 3)
Quarter: 2015Q2

REPORT INFORMATION
  Report Type: Spontaneous
  Country: CA (occurrence: CA)
  Receive Date: 20150604
  Receipt Date: 20150623
  Transmission Date: 20150821
  Serious: Yes (Death, Hospitalization)
  Sender: FDA-Public Use
  Company Number: CA-INTERMUNE, INC.-201505IM016384

PATIENT
  Age: 61 Year
  Sex: Female

DRUGS (7)
  1. WARFARIN [Suspect]
     Active Substance: WARFARIN
     Dates: start: 20141212
  2. ANTIHYPERTENSIVE MEDICATION [Concomitant]
  3. DOMPERIDONE [Concomitant]
     Active Substance: DOMPERIDONE
  4. ESBRIET [Suspect]
     Active Substance: PIRFENIDONE
     Indication: IDIOPATHIC PULMONARY FIBROSIS
     Route: 048
     Dates: start: 20130618
  5. ESBRIET [Suspect]
     Active Substance: PIRFENIDONE
     Dosage: 2403 MG
     Route: 048
  6. PANTOPRAZOLE [Concomitant]
     Active Substance: PANTOPRAZOLE SODIUM
  7. MULTIVITAMIN [Concomitant]
     Active Substance: VITAMINS

REACTIONS (6)
  - Acute hepatic failure [Fatal]
  - Atrial fibrillation [Unknown]
  - Sleep apnoea syndrome [Unknown]
  - Pulmonary embolism [Unknown]
  - Coagulopathy [Unknown]
  - Atrial thrombosis [Unknown]

NARRATIVE: CASE EVENT DATE: 20131018
